FAERS Safety Report 13402168 (Version 2)
Quarter: 2018Q1

REPORT INFORMATION
  Report Type: Spontaneous
  Country: IT (occurrence: IT)
  Receive Date: 20170404
  Receipt Date: 20180221
  Transmission Date: 20180508
  Serious: Yes (Hospitalization)
  Sender: FDA-Public Use
  Company Number: IT-DSJP-DSE-2017-110121

PATIENT

DRUGS (3)
  1. BRINTELLIX [Suspect]
     Active Substance: VORTIOXETINE HYDROBROMIDE
     Indication: DRUG ABUSE
     Dosage: 400 MG, TOTAL
     Route: 048
     Dates: start: 20161224, end: 20161224
  2. OLMESARTAN MEDOXOMIL; HYDROCHLOROTHIAZIDE [Suspect]
     Active Substance: HYDROCHLOROTHIAZIDE\OLMESARTAN MEDOXOMIL
     Indication: DRUG ABUSE
     Dosage: 28 DF, TOTAL
     Route: 048
     Dates: start: 20161224, end: 20161224
  3. NOZINAN                            /00038601/ [Suspect]
     Active Substance: LEVOMEPROMAZINE
     Indication: DRUG ABUSE
     Dosage: 750 MG, TOTAL
     Route: 048
     Dates: start: 20161224, end: 20161224

REACTIONS (2)
  - Drug abuse [Recovered/Resolved]
  - Stereotypy [Unknown]

NARRATIVE: CASE EVENT DATE: 20161224
